FAERS Safety Report 24352583 (Version 1)
Quarter: 2024Q3

REPORT INFORMATION
  Report Type: Spontaneous
  Country: US (occurrence: None)
  Receive Date: 20240922
  Receipt Date: 20240922
  Transmission Date: 20241017
  Serious: Yes (Hospitalization)
  Sender: Public
  Company Number: None

PATIENT
  Age: 50 Year
  Sex: Female
  Weight: 84.15 kg

DRUGS (4)
  1. MOUNJARO [Suspect]
     Active Substance: TIRZEPATIDE
     Indication: Obesity
     Dosage: 5 MG WEEKLY SUBCUTANEOUS ?
     Route: 058
     Dates: start: 20240724, end: 20240910
  2. MOUNJARO [Suspect]
     Active Substance: TIRZEPATIDE
     Indication: Type 2 diabetes mellitus
  3. TRULICITY [Suspect]
     Active Substance: DULAGLUTIDE
  4. MOUNJARO [Concomitant]
     Active Substance: TIRZEPATIDE

REACTIONS (8)
  - Back pain [None]
  - Abdominal distension [None]
  - Eructation [None]
  - Gastroenteritis viral [None]
  - Dyspepsia [None]
  - Hepatic steatosis [None]
  - Discoloured vomit [None]
  - Pancreatitis acute [None]

NARRATIVE: CASE EVENT DATE: 20240913
